FAERS Safety Report 11066621 (Version 1)
Quarter: 2015Q2

REPORT INFORMATION
  Report Type: Spontaneous
  Country: US (occurrence: None)
  Receive Date: 20150416
  Receipt Date: 20150416
  Transmission Date: 20150821
  Serious: Yes (Other)
  Sender: FDA-Public Use
  Company Number: 2014P1000586

PATIENT
  Age: 65 Year
  Sex: Female
  Weight: 51.26 kg

DRUGS (5)
  1. REMICADE [Suspect]
     Active Substance: INFLIXIMAB
     Indication: RHEUMATOID ARTHRITIS
     Route: 040
     Dates: start: 2004, end: 201309
  2. PREDNISONE. [Concomitant]
     Active Substance: PREDNISONE
  3. REMICADE [Suspect]
     Active Substance: INFLIXIMAB
     Indication: PSORIATIC ARTHROPATHY
     Route: 040
     Dates: start: 2004, end: 201309
  4. PLAQUENIL [Suspect]
     Active Substance: HYDROXYCHLOROQUINE SULFATE
  5. METHOTREXATE [Concomitant]
     Active Substance: METHOTREXATE

REACTIONS (8)
  - Photophobia [None]
  - Photosensitivity reaction [None]
  - Antibody test positive [None]
  - Abdominal pain [None]
  - Blood cholesterol increased [None]
  - Hepatic function abnormal [None]
  - Ocular toxicity [None]
  - Faeces pale [None]
